FAERS Safety Report 12290678 (Version 1)
Quarter: 2016Q2

REPORT INFORMATION
  Report Type: Spontaneous
  Country: US (occurrence: US)
  Receive Date: 20160421
  Receipt Date: 20160421
  Transmission Date: 20160902
  Serious: No
  Sender: FDA-Public Use
  Company Number: US-PFIZER INC-2016182209

PATIENT
  Age: 69 Year
  Sex: Male

DRUGS (12)
  1. ALLOPURINOL. [Concomitant]
     Active Substance: ALLOPURINOL
  2. ZESTRIL [Concomitant]
     Active Substance: LISINOPRIL
     Dosage: UNK
  3. AZITHROMYCIN ANHYDROUS. [Suspect]
     Active Substance: AZITHROMYCIN ANHYDROUS
     Dosage: UNK
  4. AMIODARONE HCL [Suspect]
     Active Substance: AMIODARONE HYDROCHLORIDE
     Dosage: UNK
  5. WARFARIN [Concomitant]
     Active Substance: WARFARIN
  6. PRAVACHOL [Concomitant]
     Active Substance: PRAVASTATIN SODIUM
     Dosage: UNK
  7. HYDRALAZINE [Concomitant]
     Active Substance: HYDRALAZINE HYDROCHLORIDE
     Dosage: UNK
  8. LASIX [Concomitant]
     Active Substance: FUROSEMIDE
     Dosage: UNK
  9. POTASSIUM [Concomitant]
     Active Substance: POTASSIUM
     Dosage: UNK
  10. NORVASC [Concomitant]
     Active Substance: AMLODIPINE BESYLATE
     Dosage: UNK
  11. TOPROL XL [Concomitant]
     Active Substance: METOPROLOL SUCCINATE
     Dosage: UNK
  12. FENOFIBRATE. [Concomitant]
     Active Substance: FENOFIBRATE

REACTIONS (1)
  - Drug hypersensitivity [Unknown]
